FAERS Safety Report 12327036 (Version 1)
Quarter: 2016Q2

REPORT INFORMATION
  Report Type: Spontaneous
  Country: US (occurrence: None)
  Receive Date: 20160502
  Receipt Date: 20160502
  Transmission Date: 20160815
  Serious: Yes (Disabling)
  Sender: FDA-Public Use
  Company Number: None

PATIENT
  Age: 62 Year
  Sex: Female
  Weight: 63.5 kg

DRUGS (6)
  1. MELATONIN [Concomitant]
     Active Substance: MELATONIN
  2. GLATOPA [Suspect]
     Active Substance: GLATIRAMER ACETATE
     Indication: MULTIPLE SCLEROSIS
     Route: 058
     Dates: start: 20151001, end: 20160401
  3. DOXYCYCLINE. [Concomitant]
     Active Substance: DOXYCYCLINE
  4. ERGOCALCIFEROL. [Concomitant]
     Active Substance: ERGOCALCIFEROL
  5. NORTRIPTYLINE [Concomitant]
     Active Substance: NORTRIPTYLINE
  6. COPAXONE [Concomitant]
     Active Substance: GLATIRAMER ACETATE

REACTIONS (6)
  - Coordination abnormal [None]
  - Multiple sclerosis relapse [None]
  - Cognitive disorder [None]
  - Gait disturbance [None]
  - Central nervous system lesion [None]
  - Balance disorder [None]

NARRATIVE: CASE EVENT DATE: 20160401
